FAERS Safety Report 4498600-6 (Version None)
Quarter: 2004Q4

REPORT INFORMATION
  Report Type: 
  Country: None (occurrence: None)
  Receive Date: 20041108
  Receipt Date: 20041025
  Transmission Date: 20050328
  Serious: Yes (Other)
  Sender: FDA-Public Use
  Company Number: HQWYE028925OCT04

PATIENT
  Age: 38 Year
  Sex: Male
  Weight: 124.85 kg

DRUGS (4)
  1. EFFEXOR XR [Suspect]
     Dosage: 37.5 MG 1 X PER 1 DAY, ORAL
     Route: 048
     Dates: start: 20041021, end: 20041022
  2. COZAAR [Suspect]
     Indication: HYPERTENSION
     Dosage: 50 MG 1 X PER 1 DAY
  3. HYZAAR [Suspect]
     Indication: HYPERTENSION
     Dosage: 50 MG/12.5 MG DAILY
  4. POTASSIUM (POTASSIUM) [Suspect]
     Dosage: 20 MEQ 1 X PER 1 DAY
     Dates: start: 20040601

REACTIONS (6)
  - ANXIETY [None]
  - BLOOD PRESSURE INCREASED [None]
  - CONDITION AGGRAVATED [None]
  - DRUG INTERACTION [None]
  - HEART RATE INCREASED [None]
  - LOSS OF CONSCIOUSNESS [None]
